FAERS Safety Report 9913239 (Version 1)
Quarter: 2014Q1

REPORT INFORMATION
  Report Type: Spontaneous
  Country: US (occurrence: None)
  Receive Date: 20140214
  Receipt Date: 20140214
  Transmission Date: 20141002
  Serious: Yes (Life-Threatening)
  Sender: FDA-Public Use
  Company Number: 2014022833

PATIENT
  Age: 81 Year
  Sex: Female
  Weight: 46.7 kg

DRUGS (1)
  1. FRAGMIN [Suspect]

REACTIONS (5)
  - Clostridium difficile infection [None]
  - Abdominal pain upper [None]
  - Diarrhoea [None]
  - Hypoalbuminaemia [None]
  - Bronchitis [None]
